FAERS Safety Report 8833960 (Version 2)
Quarter: 2012Q4

REPORT INFORMATION
  Report Type: 
  Country: CN (occurrence: CN)
  Receive Date: 20121010
  Receipt Date: 20121016
  Transmission Date: 20130627
  Serious: Yes (Other)
  Sender: FDA-Public Use
  Company Number: CN-BAXTER-2012BAX019556

PATIENT

DRUGS (4)
  1. ENDOXAN [Suspect]
     Indication: MINIMAL CHANGE DISEASE
     Dosage: 1 G/1.73 M2
     Route: 042
  2. ENDOXAN [Suspect]
     Dosage: 1 G/1.73 M2
     Route: 042
  3. PREDNISONE [Suspect]
     Indication: MINIMAL CHANGE DISEASE
     Route: 048
  4. SALINE [Concomitant]
     Indication: PROPHYLAXIS
     Route: 042

REACTIONS (1)
  - Renal failure acute [Recovered/Resolved]
